FAERS Safety Report 7237268-2 (Version None)
Quarter: 2011Q1

REPORT INFORMATION
  Report Type: 
  Country: None (occurrence: None)
  Receive Date: 20110111
  Receipt Date: 20101230
  Transmission Date: 20110831
  Serious: Yes (Death)
  Sender: FDA-Public Use
  Company Number: CV20100718

PATIENT
  Age: 67 Year
  Sex: Female

DRUGS (9)
  1. ATROVENT (IPRATROPIUM BROMIDE) (IPRATROPIUM BROMIDE) [Concomitant]
  2. FUROSEMIDE [Concomitant]
  3. GENTAMICIN [Suspect]
     Indication: BRONCHIECTASIS
  4. PROCHLORPERAZINE (PROCHLORPERAZINE) (PROCHLORPERAZINE) [Concomitant]
  5. CEFTAZIDIME [Suspect]
     Indication: BRONCHIECTASIS
     Dosage: INTRAVENOUS (NOT OTHERWISE SPECIFIED)
     Route: 042
     Dates: start: 20090801, end: 20090801
  6. LISINOPRIL [Concomitant]
  7. ALVERIN CITRATE (ALVERINE CITRATE) (ALVERINE CITRATE) [Concomitant]
  8. OMEPRAZOLE [Concomitant]
  9. SALBUTAMOL (SALBUTAMOL) (SALBUTAMOL) [Concomitant]

REACTIONS (2)
  - ANAPHYLACTIC REACTION [None]
  - CARDIO-RESPIRATORY ARREST [None]
